FAERS Safety Report 11120865 (Version 1)
Quarter: 2015Q2

REPORT INFORMATION
  Report Type: Spontaneous
  Country: US (occurrence: US)
  Receive Date: 20150519
  Receipt Date: 20150519
  Transmission Date: 20150821
  Serious: Yes (Hospitalization)
  Sender: FDA-Public Use
  Company Number: US-ACTELION-A-NJ2015-117136

PATIENT
  Age: 67 Year
  Sex: Female

DRUGS (17)
  1. PLAQUENIL [Concomitant]
     Active Substance: HYDROXYCHLOROQUINE SULFATE
     Dosage: 200 MG, BID
     Route: 048
  2. VICTOZA [Concomitant]
     Active Substance: LIRAGLUTIDE
     Dosage: 0,6 O1G/0.1 M!. (HL RN(,/3 ML)
     Route: 058
  3. DIOVAN HCT [Concomitant]
     Active Substance: HYDROCHLOROTHIAZIDE\VALSARTAN
     Dosage: 160-12.5 MG
     Route: 048
  4. PROVENTIL HFA [Concomitant]
     Active Substance: ALBUTEROL SULFATE
     Dosage: UNK PUFF, Q4HRS
     Route: 055
  5. TOPROL XL [Concomitant]
     Active Substance: METOPROLOL SUCCINATE
     Dosage: 200 MG, UNK
     Route: 048
  6. ZYLOPRIM [Concomitant]
     Active Substance: ALLOPURINOL
     Dosage: 300 MG, UNK
     Route: 048
  7. MUCINEX [Concomitant]
     Active Substance: GUAIFENESIN
     Dosage: 600 MG, BID
     Route: 048
  8. OPSUMIT [Suspect]
     Active Substance: MACITENTAN
     Indication: PULMONARY HYPERTENSION
     Dosage: 10 MG, QD
     Route: 048
  9. PROTONIX [Concomitant]
     Active Substance: PANTOPRAZOLE SODIUM
     Dosage: 40 MG, QAM
     Route: 048
  10. PRAVACHOL [Concomitant]
     Active Substance: PRAVASTATIN SODIUM
     Dosage: 20 MG, UNK
     Route: 048
  11. TESSALON [Concomitant]
     Active Substance: BENZONATATE
     Dosage: 100 MG, TID
     Route: 048
  12. OXYGEN. [Concomitant]
     Active Substance: OXYGEN
  13. LASIX [Concomitant]
     Active Substance: FUROSEMIDE
     Dosage: 40 MG, QD
     Route: 048
  14. LYRICA [Concomitant]
     Active Substance: PREGABALIN
     Dosage: 150 MG, UNK
     Route: 048
  15. DISALCID [Concomitant]
     Active Substance: SALSALATE
     Dosage: 750 MG, BID
     Route: 048
  16. LUMIGAN [Concomitant]
     Active Substance: BIMATOPROST
     Dosage: 0.01 %, QPM
     Route: 047
  17. ASPIRIN. [Concomitant]
     Active Substance: ASPIRIN
     Dosage: 81 MG, UNK
     Route: 048

REACTIONS (5)
  - Blood sodium increased [Recovering/Resolving]
  - Oedema peripheral [Recovering/Resolving]
  - Fluid overload [Recovering/Resolving]
  - Productive cough [Recovering/Resolving]
  - Dyspnoea [Recovering/Resolving]

NARRATIVE: CASE EVENT DATE: 20150415
